FAERS Safety Report 14576126 (Version 2)
Quarter: 2018Q2

REPORT INFORMATION
  Report Type: Spontaneous
  Country: US (occurrence: US)
  Receive Date: 20180227
  Receipt Date: 20180528
  Transmission Date: 20180711
  Serious: No
  Sender: FDA-Public Use
  Company Number: US-TEVA-2018-US-862906

PATIENT
  Sex: Female

DRUGS (2)
  1. FENTANYL. [Concomitant]
     Active Substance: FENTANYL
     Route: 062
  2. FENTORA [Suspect]
     Active Substance: FENTANYL CITRATE
     Indication: COMPLEX REGIONAL PAIN SYNDROME
     Dosage: 4800 MICROGRAM DAILY;
     Route: 065

REACTIONS (6)
  - Pain [Unknown]
  - Hyperhidrosis [Not Recovered/Not Resolved]
  - Adverse event [Not Recovered/Not Resolved]
  - Product use in unapproved indication [Recovered/Resolved]
  - Drug dose omission [Unknown]
  - Neuralgia [Unknown]

NARRATIVE: CASE EVENT DATE: 201801
